FAERS Safety Report 8523240-9 (Version None)
Quarter: 2012Q3

REPORT INFORMATION
  Report Type: 
  Country: None (occurrence: None)
  Receive Date: 20120709
  Receipt Date: 20120629
  Transmission Date: 20120928
  Serious: Yes (Other)
  Sender: FDA-Public Use
  Company Number: 7141358

PATIENT
  Age: 50 Year
  Sex: Female

DRUGS (18)
  1. . [Concomitant]
  2. . [Concomitant]
  3. . [Concomitant]
  4. . [Concomitant]
  5. CLONAZEPAM [Concomitant]
  6. ANALGESIC (UNSPECIFIED)(ANALGESICS) [Concomitant]
  7. . [Concomitant]
  8. . [Concomitant]
  9. . [Concomitant]
  10. LEVOTHYROXINE SODIUM [Suspect]
     Indication: HYPOTHYROIDISM
     Dosage: 50 MCG (50 MCG, 1 IN 1 D) ORAL
     Route: 048
     Dates: start: 20120531, end: 20120602
  11. . [Concomitant]
  12. . [Concomitant]
  13. . [Concomitant]
  14. . [Concomitant]
  15. . [Concomitant]
  16. . [Concomitant]
  17. . [Concomitant]
  18. . [Concomitant]

REACTIONS (16)
  - GASTRITIS [None]
  - FATIGUE [None]
  - PRURITUS [None]
  - GENERALISED ERYTHEMA [None]
  - AMENORRHOEA [None]
  - ANGINA PECTORIS [None]
  - NERVOUSNESS [None]
  - NASOPHARYNGITIS [None]
  - TREMOR [None]
  - HEADACHE [None]
  - CONSTIPATION [None]
  - NAUSEA [None]
  - MUSCLE SPASMS [None]
  - TACHYCARDIA [None]
  - MUSCULAR WEAKNESS [None]
  - DYSPEPSIA [None]
